FAERS Safety Report 25728970 (Version 1)
Quarter: 2025Q3

REPORT INFORMATION
  Report Type: Spontaneous
  Country: US (occurrence: US)
  Receive Date: 20250826
  Receipt Date: 20250826
  Transmission Date: 20251021
  Serious: No
  Sender: ASTELLAS
  Company Number: US-ASTELLAS-2025-AER-046055

PATIENT
  Sex: Female

DRUGS (2)
  1. VEOZAH [Suspect]
     Active Substance: FEZOLINETANT
     Indication: Menopausal symptoms
     Route: 048
     Dates: end: 202508
  2. VEOZAH [Suspect]
     Active Substance: FEZOLINETANT
     Route: 048
     Dates: start: 202508

REACTIONS (1)
  - Nightmare [Unknown]
